FAERS Safety Report 18765591 (Version 4)
Quarter: 2021Q3

REPORT INFORMATION
  Report Type: Spontaneous
  Country: US (occurrence: US)
  Receive Date: 20210121
  Receipt Date: 20210810
  Transmission Date: 20211014
  Serious: No
  Sender: FDA-Public Use
  Company Number: US-HORIZON-2021HZN00453

PATIENT
  Sex: Female

DRUGS (2)
  1. TEPEZZA [Suspect]
     Active Substance: TEPROTUMUMAB-TRBW
     Indication: BASEDOW^S DISEASE
     Dosage: 1ST INFUSION
     Route: 042
     Dates: start: 20201204
  2. TEPEZZA [Suspect]
     Active Substance: TEPROTUMUMAB-TRBW
     Dosage: 2ND INFUSION
     Route: 042
     Dates: start: 20201223

REACTIONS (10)
  - Fatigue [Unknown]
  - Product dose omission issue [Unknown]
  - Hypoacusis [Unknown]
  - Abdominal pain upper [Unknown]
  - Eye discharge [Unknown]
  - Dehydration [Unknown]
  - Rash [Recovering/Resolving]
  - Rash pruritic [Unknown]
  - Dry throat [Unknown]
  - Dry skin [Unknown]
